FAERS Safety Report 14954889 (Version 2)
Quarter: 2018Q2

REPORT INFORMATION
  Report Type: Report from Study
  Country: None (occurrence: US)
  Receive Date: 20180530
  Receipt Date: 20180606
  Transmission Date: 20180711
  Serious: No
  Sender: FDA-Public Use
  Company Number: US-ABBVIE-18K-163-2372197-00

PATIENT
  Sex: Male
  Weight: 88.53 kg

DRUGS (2)
  1. HUMIRA [Suspect]
     Active Substance: ADALIMUMAB
     Indication: PSORIATIC ARTHROPATHY
     Route: 058
  2. HUMIRA [Suspect]
     Active Substance: ADALIMUMAB
     Indication: PSORIASIS
     Route: 058
     Dates: start: 20110102

REACTIONS (1)
  - Drug ineffective [Not Recovered/Not Resolved]
